FAERS Safety Report 25008032 (Version 1)
Quarter: 2025Q1

REPORT INFORMATION
  Report Type: Report from Study
  Country: US (occurrence: US)
  Receive Date: 20250225
  Receipt Date: 20250225
  Transmission Date: 20250409
  Serious: Yes (Hospitalization, Other)
  Sender: ACADIA PHARMACEUTICALS
  Company Number: US-ACADIA PHARMACEUTICALS INC.-ACA-2025-PIM-001832

PATIENT
  Age: 62 Year
  Sex: Male

DRUGS (14)
  1. NUPLAZID [Suspect]
     Active Substance: PIMAVANSERIN TARTRATE
     Indication: Hallucination, visual
     Dosage: 34 MILLIGRAM, QD
     Route: 048
     Dates: start: 20231228
  2. GABAPENTIN [Concomitant]
     Active Substance: GABAPENTIN
  3. ACCOLATE [Concomitant]
     Active Substance: ZAFIRLUKAST
  4. NABUMETONE [Concomitant]
     Active Substance: NABUMETONE
  5. BACLOFEN [Concomitant]
     Active Substance: BACLOFEN
  6. ALLOPURINOL [Concomitant]
     Active Substance: ALLOPURINOL
  7. COLCHICINE [Concomitant]
     Active Substance: COLCHICINE
  8. TYLENOL [Concomitant]
     Active Substance: ACETAMINOPHEN
  9. MOUNJARO [Concomitant]
     Active Substance: TIRZEPATIDE
  10. METFORMIN HYDROCHLORIDE [Concomitant]
     Active Substance: METFORMIN HYDROCHLORIDE
  11. CARBIDOPA\LEVODOPA [Concomitant]
     Active Substance: CARBIDOPA\LEVODOPA
  12. SYMMETREL [Concomitant]
     Active Substance: AMANTADINE HYDROCHLORIDE
  13. DOCUSATE [Concomitant]
     Active Substance: DOCUSATE
  14. MODAFINIL [Concomitant]
     Active Substance: MODAFINIL

REACTIONS (3)
  - Transient ischaemic attack [Recovered/Resolved]
  - Head injury [Recovered/Resolved]
  - Fall [Recovered/Resolved]

NARRATIVE: CASE EVENT DATE: 20241019
